FAERS Safety Report 6391220-8 (Version None)
Quarter: 2009Q4

REPORT INFORMATION
  Report Type: 
  Country: None (occurrence: None)
  Receive Date: 20091005
  Receipt Date: 20090922
  Transmission Date: 20100525
  Serious: Yes (Hospitalization)
  Sender: FDA-Public Use
  Company Number: 2009010349

PATIENT
  Age: 18 Year
  Sex: Female
  Weight: 72.5755 kg

DRUGS (5)
  1. NUVIGIL [Suspect]
     Indication: NARCOLEPSY
     Dosage: 150 MG (150 MG, 1 IN 1 D), ORAL
     Route: 048
     Dates: start: 20090721, end: 20090810
  2. CIMETIDINE [Concomitant]
  3. PRISTIQ (DESVENLAFAXINSUCCINATE) [Concomitant]
  4. SPRINTEC (ETHINYLESTRADIOL) [Concomitant]
  5. ALLEGRA D 24 HOUR [Concomitant]

REACTIONS (4)
  - DYSPHAGIA [None]
  - DYSPNOEA [None]
  - HYPERSENSITIVITY [None]
  - OROPHARYNGEAL DISCOMFORT [None]
